FAERS Safety Report 6237098-4 (Version None)
Quarter: 2009Q2

REPORT INFORMATION
  Report Type: 
  Country: None (occurrence: None)
  Receive Date: 20090619
  Receipt Date: 20090407
  Transmission Date: 20091009
  Serious: No
  Sender: FDA-Public Use
  Company Number: US-ASTRAZENECA-2009UW08774

PATIENT
  Age: 29167 Day
  Sex: Female
  Weight: 67.6 kg

DRUGS (13)
  1. SYMBICORT [Suspect]
     Indication: ASTHMA
     Route: 055
     Dates: start: 20090301
  2. NEXIUM [Suspect]
     Indication: GASTROOESOPHAGEAL REFLUX DISEASE
     Route: 048
     Dates: start: 20090301
  3. LAMICTAL [Concomitant]
     Route: 048
  4. CELEXA [Concomitant]
     Indication: ANXIETY
     Route: 048
  5. REQUIP [Concomitant]
     Indication: ANXIETY
     Route: 048
  6. KEPPRA [Concomitant]
     Indication: MIGRAINE
     Route: 048
  7. AMBIEN [Concomitant]
     Indication: INSOMNIA
     Route: 048
  8. ATIVAN [Concomitant]
     Indication: ANXIETY
     Route: 048
  9. ANTIHYPERTENSIVES [Concomitant]
     Indication: HYPERTENSION
     Route: 048
     Dates: start: 20090101
  10. DIOVAN [Concomitant]
     Indication: HYPERTENSION
     Route: 048
     Dates: start: 20090101
  11. NORVASC [Concomitant]
     Indication: HYPERTENSION
     Route: 048
     Dates: start: 20090101
  12. COZAAR [Concomitant]
     Indication: HYPERTENSION
     Route: 048
     Dates: start: 20090101
  13. IPRATROPIUM BROMIDE [Concomitant]
     Indication: ILL-DEFINED DISORDER
     Route: 048

REACTIONS (4)
  - ANOREXIA [None]
  - COUGH [None]
  - DYSPHONIA [None]
  - WEIGHT DECREASED [None]
